FAERS Safety Report 11823424 (Version 2)
Quarter: 2016Q4

REPORT INFORMATION
  Report Type: Report from Study
  Country: AU (occurrence: AU)
  Receive Date: 20151210
  Receipt Date: 20161026
  Transmission Date: 20170206
  Serious: Yes (Death)
  Sender: FDA-Public Use
  Company Number: AU-ASTRAZENECA-2015SF20189

PATIENT
  Age: 28289 Day
  Sex: Male

DRUGS (2)
  1. CASODEX [Suspect]
     Active Substance: BICALUTAMIDE
     Dosage: 10.8/50 MG 84^S
     Route: 048
     Dates: start: 20060101
  2. ZOLADEX [Suspect]
     Active Substance: GOSERELIN ACETATE
     Dosage: 10.8/50 MG 84^S
     Route: 058
     Dates: start: 20060101

REACTIONS (1)
  - Death [Fatal]

NARRATIVE: CASE EVENT DATE: 20151018
